FAERS Safety Report 6509726-7 (Version None)
Quarter: 2009Q4

REPORT INFORMATION
  Report Type: 
  Country: None (occurrence: None)
  Receive Date: 20091222
  Receipt Date: 20091217
  Transmission Date: 20100525
  Serious: Yes (Life-Threatening, Hospitalization, Other)
  Sender: FDA-Public Use
  Company Number: US-BAYER-200943241NA

PATIENT
  Sex: Female

DRUGS (1)
  1. YAZ [Suspect]
     Indication: DRUG USE FOR UNKNOWN INDICATION
     Dates: start: 20070301, end: 20090301

REACTIONS (6)
  - ASTHENIA [None]
  - FATIGUE [None]
  - GALLBLADDER DISORDER [None]
  - ORGAN FAILURE [None]
  - PAIN [None]
  - WEIGHT DECREASED [None]
